FAERS Safety Report 19429098 (Version 1)
Quarter: 2021Q2

REPORT INFORMATION
  Report Type: Spontaneous
  Country: US (occurrence: US)
  Receive Date: 20210617
  Receipt Date: 20210617
  Transmission Date: 20210717
  Serious: No
  Sender: FDA-Public Use
  Company Number: None

PATIENT
  Age: 78 Year
  Sex: Male

DRUGS (1)
  1. IBUPROFEN. [Suspect]
     Active Substance: IBUPROFEN
     Indication: PAIN
     Route: 048
     Dates: start: 20090521, end: 20120331

REACTIONS (4)
  - Blood urea increased [None]
  - Pleural effusion [None]
  - Blood creatinine increased [None]
  - Azotaemia [None]

NARRATIVE: CASE EVENT DATE: 20210525
